FAERS Safety Report 8589542-5 (Version None)
Quarter: 2012Q3

REPORT INFORMATION
  Report Type: 
  Country: None (occurrence: None)
  Receive Date: 20120813
  Receipt Date: 20120611
  Transmission Date: 20120928
  Serious: No
  Sender: FDA-Public Use
  Company Number: US-009507513-1208USA002113

PATIENT

DRUGS (1)
  1. COPPERTONE SPORT DRY LOTION SPF 50 [Suspect]
     Indication: SUNBURN
     Dosage: UNK, UNKNOWN
     Route: 061

REACTIONS (2)
  - DRUG INEFFECTIVE [None]
  - SUNBURN [None]
